FAERS Safety Report 12342230 (Version 2)
Quarter: 2017Q1

REPORT INFORMATION
  Report Type: Report from Study
  Country: CA (occurrence: CA)
  Receive Date: 20160506
  Receipt Date: 20170120
  Transmission Date: 20170428
  Serious: Yes (Death)
  Sender: FDA-Public Use
  Company Number: CA-HLSUS-2016-CA-000095

PATIENT
  Age: 88 Year
  Sex: Female

DRUGS (1)
  1. CLOZARIL [Suspect]
     Active Substance: CLOZAPINE
     Route: 048
     Dates: start: 19971221, end: 20170116

REACTIONS (2)
  - Infection [Unknown]
  - Death [Fatal]

NARRATIVE: CASE EVENT DATE: 20170116
